FAERS Safety Report 19194558 (Version 2)
Quarter: 2021Q3

REPORT INFORMATION
  Report Type: Report from Study
  Country: US (occurrence: US)
  Receive Date: 20210429
  Receipt Date: 20210713
  Transmission Date: 20211014
  Serious: Yes (Hospitalization, Other)
  Sender: FDA-Public Use
  Company Number: US-TAKEDA-2021TUS018357

PATIENT
  Age: 29 Year
  Sex: Female

DRUGS (1)
  1. VEDOLIZUMAB [Suspect]
     Active Substance: VEDOLIZUMAB
     Indication: CROHN^S DISEASE
     Dosage: 300 MILLIGRAM
     Route: 042
     Dates: start: 20210316

REACTIONS (7)
  - Vomiting [Recovered/Resolved]
  - Nausea [Recovered/Resolved]
  - Diarrhoea [Not Recovered/Not Resolved]
  - Fatigue [Recovered/Resolved]
  - Crohn^s disease [Not Recovered/Not Resolved]
  - Headache [Recovered/Resolved]
  - Abdominal pain upper [Not Recovered/Not Resolved]

NARRATIVE: CASE EVENT DATE: 20210316
